FAERS Safety Report 12355044 (Version 1)
Quarter: 2016Q2

REPORT INFORMATION
  Report Type: Spontaneous
  Country: US (occurrence: US)
  Receive Date: 20160511
  Receipt Date: 20160511
  Transmission Date: 20160815
  Serious: No
  Sender: FDA-Public Use
  Company Number: US-ACTAVIS-2015-10324

PATIENT
  Sex: Male

DRUGS (1)
  1. IBUPROFEN OTC DYE FREE BERRY (AMALLC) [Suspect]
     Active Substance: IBUPROFEN
     Indication: PRODUCT USED FOR UNKNOWN INDICATION
     Dosage: UNK, UNKNOWN
     Route: 065
     Dates: start: 20150427, end: 20150430

REACTIONS (2)
  - Restlessness [Unknown]
  - Feeling jittery [Unknown]
